FAERS Safety Report 4564610-3 (Version None)
Quarter: 2005Q1

REPORT INFORMATION
  Report Type: 
  Country: None (occurrence: None)
  Receive Date: 20050126
  Receipt Date: 20050112
  Transmission Date: 20050727
  Serious: Yes (Hospitalization)
  Sender: FDA-Public Use
  Company Number: 2004AP02509

PATIENT
  Age: 23 Year
  Sex: Female
  Weight: 51 kg

DRUGS (9)
  1. IRESSA [Suspect]
     Indication: HEPATIC NEOPLASM MALIGNANT
     Dosage: 500 MG DAILY PO
     Route: 048
     Dates: start: 20040212, end: 20040218
  2. IRESSA [Suspect]
     Indication: HEPATIC NEOPLASM MALIGNANT
     Dosage: 250 MG DAILY PO
     Route: 048
     Dates: start: 20040225, end: 20040423
  3. IRESSA [Suspect]
     Indication: HEPATIC NEOPLASM MALIGNANT
     Dosage: 250 MG DAILY PO
     Route: 048
     Dates: start: 20040503, end: 20040524
  4. DIBERTIL [Concomitant]
  5. MOTILIUM [Concomitant]
  6. ZANTAC [Concomitant]
  7. IMODIUM [Concomitant]
  8. TERRAMYCINE [Concomitant]
  9. BAREXAL [Concomitant]

REACTIONS (23)
  - ABDOMINAL PAIN [None]
  - ABDOMINAL PAIN UPPER [None]
  - ACINETOBACTER INFECTION [None]
  - ALANINE AMINOTRANSFERASE INCREASED [None]
  - ANOREXIA [None]
  - ASPARTATE AMINOTRANSFERASE INCREASED [None]
  - BACTERIAL SEPSIS [None]
  - DEHYDRATION [None]
  - DIARRHOEA [None]
  - DISEASE PROGRESSION [None]
  - DYSPEPSIA [None]
  - FATIGUE [None]
  - FLANK PAIN [None]
  - FOOD INTOLERANCE [None]
  - GAMMA-GLUTAMYLTRANSFERASE INCREASED [None]
  - MITRAL VALVE DISEASE [None]
  - MITRAL VALVE INCOMPETENCE [None]
  - NAUSEA [None]
  - PERICARDIAL EFFUSION [None]
  - RASH [None]
  - STAPHYLOCOCCAL INFECTION [None]
  - SUPERINFECTION [None]
  - TRICUSPID VALVE INCOMPETENCE [None]
